FAERS Safety Report 8781134 (Version 1)
Quarter: 2012Q4

REPORT INFORMATION
  Report Type: 
  Country: US (occurrence: US)
  Receive Date: 20120913
  Receipt Date: 20120913
  Transmission Date: 20130627
  Serious: No
  Sender: FDA-Public Use
  Company Number: US-BAYER-2012-094960

PATIENT
  Age: 12 Year
  Sex: Male
  Weight: 37.19 kg

DRUGS (3)
  1. ALEVE CAPLET/TABLET,MIDOL EXTENDED RELIEF CAPLET [Suspect]
     Indication: HEADACHE
     Dosage: 1 DF, PRN
     Route: 048
  2. ALEVE CAPLET/TABLET,MIDOL EXTENDED RELIEF CAPLET [Suspect]
     Indication: HEADACHE
     Dosage: 1 UNK, UNK
     Route: 048
     Dates: start: 20120907, end: 20120907
  3. NOVOLOG [Concomitant]

REACTIONS (1)
  - Palpitations [Recovered/Resolved]
